FAERS Safety Report 16033836 (Version 1)
Quarter: 2019Q1

REPORT INFORMATION
  Report Type: Spontaneous
  Country: US (occurrence: US)
  Receive Date: 20190305
  Receipt Date: 20190305
  Transmission Date: 20190418
  Serious: Yes (Hospitalization, Other)
  Sender: FDA-Public Use
  Company Number: US-AUROBINDO-AUR-APL-2018-061625

PATIENT

DRUGS (9)
  1. TRAZODONE [Concomitant]
     Active Substance: TRAZODONE HYDROCHLORIDE
     Indication: PAIN
  2. SERTRALINE [Concomitant]
     Active Substance: SERTRALINE HYDROCHLORIDE
     Indication: ANXIETY
     Dosage: 50 MILLIGRAM, DAILY
     Route: 065
  3. DIVALPROEX SODIUM. [Concomitant]
     Active Substance: DIVALPROEX SODIUM
     Indication: PAIN
  4. GABAPENTIN CAPSULES 400 MG [Suspect]
     Active Substance: GABAPENTIN
     Indication: ANXIETY
     Dosage: 300 MILLIGRAM, 3 TIMES A DAY
     Route: 045
  5. GABAPENTIN CAPSULES 400 MG [Suspect]
     Active Substance: GABAPENTIN
     Dosage: 10 DOSAGE FORM 400 MG
     Route: 065
  6. TRAZODONE [Concomitant]
     Active Substance: TRAZODONE HYDROCHLORIDE
     Indication: ANXIETY
     Dosage: 100 MILLIGRAM, NIGHTLY
     Route: 065
  7. DIVALPROEX SODIUM. [Concomitant]
     Active Substance: DIVALPROEX SODIUM
     Indication: ANXIETY
     Dosage: 1000 MILLIGRAM, NIGHTLY
     Route: 065
  8. GABAPENTIN CAPSULES 400 MG [Suspect]
     Active Substance: GABAPENTIN
     Indication: PAIN
     Dosage: 100 MILLIGRAM, 3 TIMES A DAY
     Route: 045
  9. SERTRALINE [Concomitant]
     Active Substance: SERTRALINE HYDROCHLORIDE
     Indication: PAIN

REACTIONS (13)
  - Withdrawal syndrome [Unknown]
  - Substance use disorder [Unknown]
  - Drug abuse [Unknown]
  - Dysphoria [Unknown]
  - Toxicity to various agents [Unknown]
  - Intentional product misuse [Unknown]
  - Diarrhoea [Unknown]
  - Suicidal ideation [Unknown]
  - Somnolence [Unknown]
  - Poisoning [Unknown]
  - Overdose [Unknown]
  - Irritability [Unknown]
  - Nausea [Unknown]
